FAERS Safety Report 24898562 (Version 1)
Quarter: 2025Q1

REPORT INFORMATION
  Report Type: Other
  Country: GB (occurrence: GB)
  Receive Date: 20250129
  Receipt Date: 20250129
  Transmission Date: 20250409
  Serious: Yes (Death, Life-Threatening, Other)
  Sender: MACLEODS
  Company Number: None

PATIENT

DRUGS (1)
  1. SILDENAFIL [Suspect]
     Active Substance: SILDENAFIL
     Indication: Product used for unknown indication
     Route: 065

REACTIONS (1)
  - Death [Fatal]
